FAERS Safety Report 6442852-X (Version None)
Quarter: 2009Q4

REPORT INFORMATION
  Report Type: 
  Country: None (occurrence: None)
  Receive Date: 20091117
  Receipt Date: 20060607
  Transmission Date: 20100525
  Serious: Yes (Hospitalization)
  Sender: FDA-Public Use
  Company Number: DE-PFIZER INC-2006065174

PATIENT
  Age: 71 Year
  Sex: Male
  Weight: 78 kg

DRUGS (3)
  1. SUNITINIB MALATE [Suspect]
     Indication: METASTATIC RENAL CELL CARCINOMA
     Dosage: 50 MG, 1X/DAY
     Route: 048
     Dates: start: 20060224
  2. NORVASC [Concomitant]
     Route: 048
     Dates: start: 20060222
  3. CIPROFLOXACIN [Concomitant]
     Route: 048
     Dates: start: 20060509, end: 20060515

REACTIONS (1)
  - HEPATOTOXICITY [None]
